FAERS Safety Report 19139792 (Version 10)
Quarter: 2021Q3

REPORT INFORMATION
  Report Type: Report from Study
  Country: GB (occurrence: GB)
  Receive Date: 20210415
  Receipt Date: 20210810
  Transmission Date: 20211014
  Serious: Yes (Death, Hospitalization)
  Sender: FDA-Public Use
  Company Number: GB-EISAI MEDICAL RESEARCH-EC-2021-091048

PATIENT
  Age: 67 Year
  Sex: Female
  Weight: 63.05 kg

DRUGS (17)
  1. PEMBROLIZUMAB. [Suspect]
     Active Substance: PEMBROLIZUMAB
     Route: 041
     Dates: start: 20210222, end: 20210222
  2. ACETAMINOPHEN. [Concomitant]
     Active Substance: ACETAMINOPHEN
     Dates: start: 20201020
  3. POLYETHYLENE GLYCOL COMPOUND [Concomitant]
     Dates: start: 20201021
  4. LENVATINIB [Suspect]
     Active Substance: LENVATINIB
     Indication: NON-SMALL CELL LUNG CANCER METASTATIC
     Route: 048
     Dates: start: 20201106, end: 20201126
  5. SITAGLIPTIN PHOSPHATE [Concomitant]
     Active Substance: SITAGLIPTIN PHOSPHATE
     Dates: start: 20200715
  6. BISACODYL. [Concomitant]
     Active Substance: BISACODYL
     Dates: start: 20201021
  7. PEMBROLIZUMAB. [Suspect]
     Active Substance: PEMBROLIZUMAB
     Indication: NON-SMALL CELL LUNG CANCER METASTATIC
     Route: 041
     Dates: start: 20201106, end: 20201106
  8. PEMBROLIZUMAB. [Suspect]
     Active Substance: PEMBROLIZUMAB
     Route: 041
     Dates: start: 20210322, end: 20210322
  9. BISOPROLOL [Concomitant]
     Active Substance: BISOPROLOL
     Dates: start: 199901
  10. FLECAINIDE [Concomitant]
     Active Substance: FLECAINIDE
     Dates: start: 199901
  11. ATORVASTATIN [Concomitant]
     Active Substance: ATORVASTATIN
     Dates: start: 200501
  12. LENVATINIB [Suspect]
     Active Substance: LENVATINIB
     Dosage: STARTING DOSE AT 20 MILLIGRAM (FLUCTUATED DOSE)
     Route: 048
     Dates: start: 20201127, end: 20210221
  13. LENVATINIB [Suspect]
     Active Substance: LENVATINIB
     Route: 048
     Dates: start: 20210222, end: 20210604
  14. LEVOTHYROXINE SODIUM. [Concomitant]
     Active Substance: LEVOTHYROXINE SODIUM
     Dates: start: 201701
  15. PEMBROLIZUMAB. [Suspect]
     Active Substance: PEMBROLIZUMAB
     Route: 041
     Dates: start: 20201127, end: 20210201
  16. OMEPRAZOLE. [Concomitant]
     Active Substance: OMEPRAZOLE
     Dates: start: 201801
  17. CODEINE [Concomitant]
     Active Substance: CODEINE
     Dates: start: 20201020, end: 20201112

REACTIONS (2)
  - Constipation [Not Recovered/Not Resolved]
  - Hypoaldosteronism [Not Recovered/Not Resolved]

NARRATIVE: CASE EVENT DATE: 20201112
